FAERS Safety Report 4578454-X (Version None)
Quarter: 2005Q1

REPORT INFORMATION
  Report Type: 
  Country: None (occurrence: None)
  Receive Date: 20050202
  Receipt Date: 20050202
  Transmission Date: 20050727
  Serious: Yes (Hospitalization)
  Sender: FDA-Public Use
  Company Number: None

PATIENT
  Age: 67 Year
  Sex: Female
  Weight: 95 kg

DRUGS (5)
  1. GEMCITABINE (ARM A) [Suspect]
     Indication: PANCREATIC CARCINOMA
     Dosage: 2086 MG DAY 1, 8, 15, 22, 29, 36
     Dates: start: 20041210
  2. GEMCITABINE (ARM A) [Suspect]
     Indication: PANCREATIC CARCINOMA
     Dosage: 2086 MG DAY 1, 8, 15, 22, 29, 36
     Dates: start: 20041216
  3. GEMCITABINE (ARM A) [Suspect]
     Indication: PANCREATIC CARCINOMA
     Dosage: 2086 MG DAY 1, 8, 15, 22, 29, 36
     Dates: start: 20041223
  4. GEMCITABINE (ARM A) [Suspect]
     Indication: PANCREATIC CARCINOMA
     Dosage: 2086 MG DAY 1, 8, 15, 22, 29, 36
     Dates: start: 20041230
  5. GEMCITABINE (ARM A) [Suspect]
     Indication: PANCREATIC CARCINOMA
     Dosage: 2086 MG DAY 1, 8, 15, 22, 29, 36
     Dates: start: 20050106

REACTIONS (9)
  - ABDOMINAL DISTENSION [None]
  - ARRHYTHMIA [None]
  - EATING DISORDER [None]
  - FATIGUE [None]
  - FEELING ABNORMAL [None]
  - NAUSEA [None]
  - ORAL INTAKE REDUCED [None]
  - TACHYCARDIA [None]
  - VOMITING [None]
